FAERS Safety Report 6066102-1 (Version None)
Quarter: 2009Q1

REPORT INFORMATION
  Report Type: 
  Country: None (occurrence: None)
  Receive Date: 20090130
  Receipt Date: 20090119
  Transmission Date: 20090719
  Serious: Yes (Death, Other)
  Sender: FDA-Public Use
  Company Number: 1000003715

PATIENT
  Age: 85 Year
  Sex: Male

DRUGS (12)
  1. MEMANTINE HCL [Suspect]
     Indication: AGGRESSION
     Dosage: 10 MG (5 MG, 2 IN 1 D), ORAL
     Route: 048
     Dates: start: 20081113, end: 20090113
  2. MEMANTINE HCL [Suspect]
     Indication: AGITATION
     Dosage: 10 MG (5 MG, 2 IN 1 D), ORAL
     Route: 048
     Dates: start: 20081113, end: 20090113
  3. DOCUSATE SODIUM [Concomitant]
  4. RAMIPRIL [Concomitant]
  5. SIMVASTATIN [Concomitant]
  6. CARVEDILOL [Concomitant]
  7. GALANTAMINE HYDROBROMIDE [Concomitant]
  8. LANSOPRAZOLE [Concomitant]
  9. TYLENOL [Concomitant]
  10. MAGNESIUM HYDROXIDE TAB [Concomitant]
  11. FUROSEMIDE [Concomitant]
  12. OLANZAPINE [Concomitant]

REACTIONS (2)
  - DRUG INEFFECTIVE [None]
  - GENERAL PHYSICAL HEALTH DETERIORATION [None]
